FAERS Safety Report 5320533-3 (Version None)
Quarter: 2007Q2

REPORT INFORMATION
  Report Type: 
  Country: None (occurrence: None)
  Receive Date: 20070502
  Receipt Date: 20070416
  Transmission Date: 20071010
  Serious: Yes (Hospitalization)
  Sender: FDA-Public Use
  Company Number: 310002L07USA

PATIENT
  Age: 28 Year
  Sex: Female

DRUGS (4)
  1. GONAL-F [Suspect]
     Indication: IN VITRO FERTILISATION
     Dosage: 112.5 IU, 2 IN 1 DAYS
  2. OVIDREL [Suspect]
     Indication: IN VITRO FERTILISATION
     Dosage: 250 MCG
  3. LEUPROLIDE ACETATE [Concomitant]
  4. PROGESTERONE [Concomitant]

REACTIONS (16)
  - ASCITES [None]
  - DIARRHOEA [None]
  - DRUG EXPOSURE BEFORE PREGNANCY [None]
  - FALLOPIAN TUBE DISORDER [None]
  - HAEMORRHAGE [None]
  - HAEMORRHAGIC INFARCTION [None]
  - NAUSEA [None]
  - OVARIAN CYST [None]
  - OVARIAN CYST RUPTURED [None]
  - OVARIAN HAEMORRHAGE [None]
  - OVARIAN HYPERSTIMULATION SYNDROME [None]
  - OVARIAN NECROSIS [None]
  - OVARIAN TORSION [None]
  - PELVIC FLUID COLLECTION [None]
  - PREGNANCY [None]
  - VOMITING [None]
